FAERS Safety Report 4649255-9 (Version None)
Quarter: 2005Q2

REPORT INFORMATION
  Report Type: 
  Country: None (occurrence: None)
  Receive Date: 20050429
  Receipt Date: 20050426
  Transmission Date: 20051028
  Serious: Yes (Disabling)
  Sender: FDA-Public Use
  Company Number: US-MERCK-0504USA04559

PATIENT
  Age: 65 Year
  Sex: Male

DRUGS (4)
  1. FOSAMAX [Suspect]
     Indication: OSTEOPOROSIS
     Route: 048
     Dates: start: 20041101, end: 20050413
  2. ALBUTEROL [Concomitant]
     Route: 065
  3. SEREVENT [Concomitant]
     Route: 065
  4. ATROVENT [Concomitant]
     Route: 065

REACTIONS (2)
  - ARTHRALGIA [None]
  - EPICONDYLITIS [None]
